FAERS Safety Report 5578665-0 (Version None)
Quarter: 2008Q1

REPORT INFORMATION
  Report Type: 
  Country: None (occurrence: None)
  Receive Date: 20080102
  Receipt Date: 20071223
  Transmission Date: 20080703
  Serious: Yes (Other)
  Sender: FDA-Public Use
  Company Number: US-JNJFOC-20071203912

PATIENT

DRUGS (2)
  1. DOXIL [Suspect]
     Indication: MYELOID METAPLASIA
  2. VELCADE [Suspect]
     Indication: MYELOID METAPLASIA
     Route: 065

REACTIONS (1)
  - MICROANGIOPATHIC HAEMOLYTIC ANAEMIA [None]
